FAERS Safety Report 6508248-7 (Version None)
Quarter: 2009Q4

REPORT INFORMATION
  Report Type: 
  Country: None (occurrence: None)
  Receive Date: 20091221
  Receipt Date: 20091214
  Transmission Date: 20100525
  Serious: Yes (Hospitalization)
  Sender: FDA-Public Use
  Company Number: JP-NAPPMUNDI-MAG-2009-0001170

PATIENT
  Age: 65 Year
  Sex: Female

DRUGS (1)
  1. OXYCODONE HCL PR TABLET 5 MG [Suspect]
     Indication: CANCER PAIN
     Dosage: 5 MG, DAILY
     Route: 048

REACTIONS (1)
  - CHOLANGITIS [None]
